FAERS Safety Report 7764361-8 (Version None)
Quarter: 2011Q3

REPORT INFORMATION
  Report Type: 
  Country: None (occurrence: None)
  Receive Date: 20110919
  Receipt Date: 20110907
  Transmission Date: 20111222
  Serious: Yes (Life-Threatening, Hospitalization)
  Sender: FDA-Public Use
  Company Number: DSM-2011-00817

PATIENT
  Age: 83 Year
  Sex: Male

DRUGS (11)
  1. FUROSEMIDE [Suspect]
     Indication: CARDIORENAL SYNDROME
     Dosage: ORAL
     Route: 048
  2. ALDACTONE [Suspect]
     Indication: PRODUCT USED FOR UNKNOWN INDICATION
     Dosage: ORAL
     Route: 048
     Dates: end: 20110607
  3. CORDARONE [Concomitant]
  4. DIAFUSOR (GLYCERYL TRINITRATE) (BLYCERYL TRINITRATE) [Concomitant]
  5. SPECIAFOLDINE (FOLIC ACID) (FOLIC ACID) [Concomitant]
  6. DIFFU K (POTASSIUM CHLORIDE) (POTASSIUM CHLORIDE) [Concomitant]
  7. SEVIKAR (OLMESARTAN MEDOXOMIL, AMLODIPINE BESILATE) (TABLET) (OLMESART [Suspect]
     Indication: CARDIORENAL SYNDROME
     Dosage: 20/5 MG (1 IN 1 D)
     Dates: end: 20110607
  8. EUPRESSYL (URAPIDIL) (URAPIDIL) [Concomitant]
  9. DIAFUSOR (GLYCERYL TRINITRATE) (GLYCERYL TRINITRATE) [Concomitant]
  10. XANAX [Concomitant]
  11. IKOREL (NICORANDIL) (20 MILLIGRAM, TABLET) (NICORANDIL) [Suspect]
     Indication: CARDIORENAL SYNDROME
     Dosage: 40 MG (20 MG, 2 IN 1 D), ORAL
     Route: 048
     Dates: end: 20110607

REACTIONS (5)
  - LOWER GASTROINTESTINAL HAEMORRHAGE [None]
  - CARDIAC DISORDER [None]
  - HAEMORRHAGIC ANAEMIA [None]
  - RENAL FAILURE [None]
  - HYPERKALAEMIA [None]
